FAERS Safety Report 8511494-4 (Version None)
Quarter: 2012Q3

REPORT INFORMATION
  Report Type: 
  Country: None (occurrence: None)
  Receive Date: 20120716
  Receipt Date: 20120703
  Transmission Date: 20120928
  Serious: Yes (Death)
  Sender: FDA-Public Use
  Company Number: JP-AMGEN-JPNCT2012043382

PATIENT
  Age: 79 Year
  Sex: Male
  Weight: 61 kg

DRUGS (5)
  1. CARVEDILOL [Concomitant]
     Dosage: UNCERTAINTY
     Route: 048
  2. SIGMART [Concomitant]
     Dosage: UNCERTAINTY
     Route: 048
  3. LASIX [Concomitant]
     Dosage: UNCERTAINTY
     Route: 048
  4. DARBEPOETIN ALFA - KHK [Suspect]
     Indication: NEPHROGENIC ANAEMIA
     Dosage: 60 MUG, Q2WK
     Route: 058
     Dates: start: 20110524, end: 20111206
  5. ALLOPURINOL [Concomitant]
     Dosage: UNCERTAINTY
     Route: 048

REACTIONS (1)
  - MYOCARDIAL INFARCTION [None]
